FAERS Safety Report 4722446-4 (Version None)
Quarter: 2005Q3

REPORT INFORMATION
  Report Type: 
  Country: None (occurrence: None)
  Receive Date: 20050722
  Receipt Date: 20050420
  Transmission Date: 20060218
  Serious: No
  Sender: FDA-Public Use
  Company Number: US-GLAXOSMITHKLINE-A0555222A

PATIENT
  Age: 62 Year
  Sex: Female

DRUGS (3)
  1. AVANDIA [Suspect]
     Dosage: 8MG TWICE PER DAY
     Route: 048
  2. ALLEGRA [Concomitant]
  3. GLUCOPHAGE [Concomitant]

REACTIONS (1)
  - OVERDOSE [None]
